FAERS Safety Report 9520595 (Version 1)
Quarter: 2013Q3

REPORT INFORMATION
  Report Type: Spontaneous
  Country: US (occurrence: US)
  Receive Date: 20130913
  Receipt Date: 20130913
  Transmission Date: 20140515
  Serious: Yes (Other)
  Sender: FDA-Public Use
  Company Number: US-BIOGENIDEC-2013BI087258

PATIENT
  Age: 45 Year
  Sex: Female

DRUGS (6)
  1. AVONEX [Suspect]
     Indication: MULTIPLE SCLEROSIS
     Route: 030
     Dates: start: 20130319, end: 201304
  2. AVONEX [Suspect]
     Indication: MULTIPLE SCLEROSIS
     Route: 030
     Dates: start: 201304, end: 201305
  3. AVONEX [Suspect]
     Indication: MULTIPLE SCLEROSIS
     Route: 030
     Dates: start: 201305, end: 201306
  4. AVONEX [Suspect]
     Indication: MULTIPLE SCLEROSIS
     Route: 030
     Dates: start: 201306
  5. PLAQUENIL [Concomitant]
     Indication: RHEUMATOID ARTHRITIS
  6. SULFAZIDE [Concomitant]
     Indication: RHEUMATOID ARTHRITIS

REACTIONS (13)
  - Uterine cancer [Not Recovered/Not Resolved]
  - Feeling cold [Recovered/Resolved]
  - Rheumatoid arthritis [Unknown]
  - Fall [Recovered/Resolved]
  - Hypoaesthesia [Recovered/Resolved]
  - Neuropathy peripheral [Unknown]
  - Tendon injury [Unknown]
  - Tremor [Recovered/Resolved]
  - Menorrhagia [Unknown]
  - Feeling hot [Unknown]
  - Arthritis [Unknown]
  - Fatigue [Not Recovered/Not Resolved]
  - Headache [Unknown]
